FAERS Safety Report 5644186-X (Version None)
Quarter: 2008Q1

REPORT INFORMATION
  Report Type: 
  Country: None (occurrence: None)
  Receive Date: 20080229
  Receipt Date: 20080129
  Transmission Date: 20080703
  Serious: No
  Sender: FDA-Public Use
  Company Number: US-BAYER-200812814NA

PATIENT
  Age: 62 Year
  Sex: Female
  Weight: 77 kg

DRUGS (5)
  1. CLIMARA [Suspect]
     Indication: MENOPAUSAL SYMPTOMS
     Route: 061
  2. LOTENSIN HCT [Concomitant]
  3. NEXIUM [Concomitant]
  4. MOBIC [Concomitant]
  5. ZYRTEC [Concomitant]

REACTIONS (2)
  - INSOMNIA [None]
  - PHARMACEUTICAL PRODUCT COMPLAINT [None]
